FAERS Safety Report 18259328 (Version 1)
Quarter: 2020Q3

REPORT INFORMATION
  Report Type: Spontaneous
  Country: TH (occurrence: TH)
  Receive Date: 20200911
  Receipt Date: 20200911
  Transmission Date: 20201103
  Serious: Yes (Other)
  Sender: FDA-Public Use
  Company Number: NVSC2020TH244452

PATIENT
  Age: 32 Year
  Sex: Male

DRUGS (7)
  1. ACYCLOVIR. [Concomitant]
     Active Substance: ACYCLOVIR
     Indication: PRODUCT USED FOR UNKNOWN INDICATION
     Route: 065
  2. WARFARIN [Concomitant]
     Active Substance: WARFARIN
     Indication: PRODUCT USED FOR UNKNOWN INDICATION
     Route: 065
  3. FLUCONAZOLE. [Concomitant]
     Active Substance: FLUCONAZOLE
     Indication: PRODUCT USED FOR UNKNOWN INDICATION
     Route: 065
  4. ELTROMBOPAG [Suspect]
     Active Substance: ELTROMBOPAG
     Indication: IMMUNE THROMBOCYTOPENIA
     Dosage: UNK
     Route: 065
     Dates: start: 2013
  5. LOW MOLECULAR WEIGHT HEPARIN [Concomitant]
     Active Substance: UNSPECIFIED INGREDIENT
     Indication: IMMUNE THROMBOCYTOPENIA
     Dosage: FULL DOSE
     Route: 065
     Dates: start: 2013
  6. IMMUNOGLOBULIN I.V [Concomitant]
     Active Substance: HUMAN IMMUNOGLOBULIN G
     Indication: IMMUNE THROMBOCYTOPENIA
     Dosage: UNK
     Route: 065
     Dates: start: 2013
  7. BACTRIM [Concomitant]
     Active Substance: SULFAMETHOXAZOLE\TRIMETHOPRIM
     Indication: PRODUCT USED FOR UNKNOWN INDICATION
     Route: 065

REACTIONS (13)
  - Pneumocystis jirovecii pneumonia [Unknown]
  - Pulmonary arterial hypertension [Unknown]
  - Lung consolidation [Unknown]
  - Pyrexia [Unknown]
  - Organising pneumonia [Unknown]
  - Embolism [Unknown]
  - Bronchiectasis [Unknown]
  - Hypersensitivity pneumonitis [Unknown]
  - Pneumonia [Unknown]
  - Osteonecrosis [Unknown]
  - Lung opacity [Unknown]
  - Lung disorder [Unknown]
  - Cough [Unknown]

NARRATIVE: CASE EVENT DATE: 201408
